FAERS Safety Report 17024848 (Version 2)
Quarter: 2019Q4

REPORT INFORMATION
  Report Type: Report from Study
  Country: MX (occurrence: MX)
  Receive Date: 20191113
  Receipt Date: 20191122
  Transmission Date: 20200122
  Serious: Yes (Other)
  Sender: FDA-Public Use
  Company Number: NVSC2019MX033740

PATIENT
  Sex: Female
  Weight: 58 kg

DRUGS (1)
  1. FEMARA [Suspect]
     Active Substance: LETROZOLE
     Indication: BREAST CANCER
     Dosage: 1 DF, QD
     Route: 048
     Dates: start: 201806

REACTIONS (3)
  - Blindness [Not Recovered/Not Resolved]
  - Stress [Not Recovered/Not Resolved]
  - Strabismus [Not Recovered/Not Resolved]
